FAERS Safety Report 6611146-1 (Version None)
Quarter: 2010Q1

REPORT INFORMATION
  Report Type: 
  Country: None (occurrence: None)
  Receive Date: 20100302
  Receipt Date: 20100302
  Transmission Date: 20100710
  Serious: Yes (Hospitalization)
  Sender: FDA-Public Use
  Company Number: None

PATIENT
  Age: 75 Year
  Sex: Female
  Weight: 71 kg

DRUGS (14)
  1. LOVENOX [Suspect]
     Indication: DEEP VEIN THROMBOSIS
     Dosage: 90 MG DAILY SQ  CHRONIC
     Route: 058
  2. COUMADIN [Suspect]
     Indication: PULMONARY EMBOLISM
     Dosage: DAILY PO  CHRONIC
     Route: 048
  3. VICOPROFEN [Suspect]
     Indication: PAIN
     Dosage: 7.5MG/         Q4HR PRN PO   CHRONIC
     Route: 048
  4. MS CONTIN [Concomitant]
  5. SENOKOT [Concomitant]
  6. CITALOPRAM HYDROBROMIDE [Concomitant]
  7. MOM [Concomitant]
  8. MIDODRINE HYDROCHLORIDE [Concomitant]
  9. PROTONIX [Concomitant]
  10. ZOFRAN [Concomitant]
  11. ATIVAN [Concomitant]
  12. GLYCERIN SUPP [Concomitant]
  13. RITALIN [Concomitant]
  14. REGLAN [Concomitant]

REACTIONS (2)
  - GASTROINTESTINAL HAEMORRHAGE [None]
  - HYPONATRAEMIA [None]
